FAERS Safety Report 4380279-5 (Version None)
Quarter: 2004Q2

REPORT INFORMATION
  Report Type: 
  Country: None (occurrence: None)
  Receive Date: 20040618
  Receipt Date: 20040528
  Transmission Date: 20050107
  Serious: Yes (Other)
  Sender: FDA-Public Use
  Company Number: PHHO2004CA07750

PATIENT
  Sex: Male

DRUGS (2)
  1. ELIDEL [Suspect]
     Indication: ECZEMA
     Dosage: 2/DAY
  2. CORTISONE ^CIBA-GEIGY^ [Concomitant]

REACTIONS (6)
  - APPLICATION SITE PRURITUS [None]
  - BURNING SENSATION [None]
  - ECZEMA [None]
  - ERYTHEMA [None]
  - SWELLING FACE [None]
  - URTICARIA [None]
